FAERS Safety Report 4280505-7 (Version None)
Quarter: 2004Q1

REPORT INFORMATION
  Report Type: 
  Country: None (occurrence: None)
  Receive Date: 20040127
  Receipt Date: 20040119
  Transmission Date: 20041129
  Serious: Yes (Life-Threatening, Hospitalization)
  Sender: FDA-Public Use
  Company Number: 04P-087-0247859-00

PATIENT
  Sex: Male

DRUGS (4)
  1. KALETRA [Suspect]
     Indication: HIV INFECTION
     Dosage: 6 CAPSULE, 1 IN 1 D, PER ORAL
     Route: 048
     Dates: start: 20020403
  2. LAMIVUDINE [Suspect]
     Indication: HIV INFECTION
     Dosage: 300 MG, 1 IN 1 D, PER ORAL
     Route: 048
     Dates: start: 20020403
  3. STAVUDINE [Suspect]
     Indication: HIV INFECTION
     Dosage: 80 MG, 1 IN 1 D, PER ORAL
     Route: 048
     Dates: start: 20020403
  4. BACTRIM [Concomitant]

REACTIONS (2)
  - ANAEMIA [None]
  - LUNG SQUAMOUS CELL CARCINOMA STAGE IV [None]
